FAERS Safety Report 10153390 (Version 1)
Quarter: 2014Q2

REPORT INFORMATION
  Report Type: Spontaneous
  Country: US (occurrence: US)
  Receive Date: 20140505
  Receipt Date: 20140505
  Transmission Date: 20141212
  Serious: No
  Sender: FDA-Public Use
  Company Number: US-ASTRAZENECA-2014SE00721

PATIENT
  Sex: Female

DRUGS (2)
  1. OMEPRAZOLE [Suspect]
     Indication: DYSPEPSIA
     Route: 048
  2. NADOLOL [Concomitant]
     Indication: VARICES OESOPHAGEAL
     Dosage: UNKNOWN UNK

REACTIONS (2)
  - Varices oesophageal [Unknown]
  - Drug ineffective [Unknown]
